FAERS Safety Report 7761311-5 (Version None)
Quarter: 2011Q3

REPORT INFORMATION
  Report Type: 
  Country: None (occurrence: None)
  Receive Date: 20110920
  Receipt Date: 20110916
  Transmission Date: 20111222
  Serious: Yes (Hospitalization, Other)
  Sender: FDA-Public Use
  Company Number: US-PFIZER INC-2010036981

PATIENT
  Sex: Male

DRUGS (8)
  1. DILANTIN [Suspect]
     Indication: CONVULSION
     Dosage: 500 MG, UNK
     Route: 042
     Dates: start: 20040330, end: 20040330
  2. DILANTIN [Suspect]
     Dosage: 200 MG, 2X/DAY
     Route: 042
     Dates: start: 20040331, end: 20040401
  3. DILANTIN [Suspect]
     Dosage: 200 MG, 2X/DAY
     Route: 048
     Dates: start: 20040403, end: 20040510
  4. TEGRETOL [Concomitant]
     Dosage: 300 MG, 2X/DAY
     Dates: start: 20040401, end: 20040510
  5. DILANTIN [Suspect]
     Dosage: 300 MG, 1X/DAY
     Route: 048
     Dates: start: 20040330, end: 20040331
  6. TEGRETOL [Concomitant]
     Indication: CONVULSION
     Dosage: 200 MG, 2X/DAY
     Route: 048
     Dates: start: 20040403
  7. DILANTIN [Suspect]
     Dosage: 30 MG, UNK
     Route: 048
  8. CARBATROL [Concomitant]
     Dosage: UNK

REACTIONS (1)
  - STEVENS-JOHNSON SYNDROME [None]
